FAERS Safety Report 21223742 (Version 2)
Quarter: 2022Q3

REPORT INFORMATION
  Report Type: Spontaneous
  Country: US (occurrence: None)
  Receive Date: 20220817
  Receipt Date: 20220819
  Transmission Date: 20221026
  Serious: Yes (Other)
  Sender: FDA-Public Use
  Company Number: 2022A283774

PATIENT
  Age: 31425 Day

DRUGS (1)
  1. SYMBICORT [Suspect]
     Active Substance: BUDESONIDE\FORMOTEROL FUMARATE DIHYDRATE
     Indication: Chronic obstructive pulmonary disease
     Dosage: 160/4.5 MCG, 2 PUFFS 2 TIMES A DAY
     Route: 055

REACTIONS (10)
  - Uterine cancer [Unknown]
  - Sciatic nerve neuropathy [Unknown]
  - Candida infection [Not Recovered/Not Resolved]
  - Neuropathy peripheral [Unknown]
  - Lymphoedema [Unknown]
  - Lipoma [Unknown]
  - Spinal osteoarthritis [Unknown]
  - Hiatus hernia [Unknown]
  - Spinal disorder [Unknown]
  - Device malfunction [Unknown]

NARRATIVE: CASE EVENT DATE: 20220810
